FAERS Safety Report 8578585-3 (Version None)
Quarter: 2012Q3

REPORT INFORMATION
  Report Type: 
  Country: None (occurrence: None)
  Receive Date: 20120808
  Receipt Date: 20120730
  Transmission Date: 20120928
  Serious: Yes (Hospitalization)
  Sender: FDA-Public Use
  Company Number: JP-BRISTOL-MYERS SQUIBB COMPANY-16829186

PATIENT
  Age: 69 Year
  Sex: Female

DRUGS (6)
  1. NORVIR [Suspect]
     Indication: HIV INFECTION
     Dosage: CAPS. 06JAN05-26AP2011,27APR11 TO 30MAY11
     Route: 048
     Dates: start: 20050106, end: 20110530
  2. ZYRTEC [Concomitant]
     Indication: RHINITIS
     Dosage: TABS
     Route: 048
     Dates: start: 20050906
  3. EPIVIR [Suspect]
     Indication: HIV INFECTION
     Dosage: TABS. 14DEC04 TO 30DEC04:150MGX2
     Route: 048
     Dates: start: 20050106, end: 20110530
  4. REYATAZ [Suspect]
     Indication: HIV INFECTION
     Route: 048
     Dates: start: 20050106, end: 20110530
  5. CANDESARTAN CILEXETIL [Concomitant]
     Indication: HYPERTENSION
     Dosage: TABS
     Route: 048
     Dates: start: 20040401
  6. VIREAD [Suspect]
     Indication: HIV INFECTION
     Route: 048
     Dates: start: 20050106, end: 20110530

REACTIONS (3)
  - DEHYDRATION [None]
  - RENAL IMPAIRMENT [None]
  - DIARRHOEA [None]
